FAERS Safety Report 13829098 (Version 5)
Quarter: 2018Q1

REPORT INFORMATION
  Report Type: Spontaneous
  Country: JP (occurrence: JP)
  Receive Date: 20170803
  Receipt Date: 20180115
  Transmission Date: 20180508
  Serious: Yes (Death, Hospitalization)
  Sender: FDA-Public Use
  Company Number: JP-UNITED THERAPEUTICS-UNT-2017-011491

PATIENT
  Age: 72 Year
  Sex: Female
  Weight: 51 kg

DRUGS (45)
  1. ADCIRCA [Concomitant]
     Active Substance: TADALAFIL
     Indication: SYSTEMIC LUPUS ERYTHEMATOSUS
  2. CARELOAD [Concomitant]
     Active Substance: BERAPROST SODIUM
     Indication: PULMONARY ARTERIAL HYPERTENSION
     Dosage: UNK
     Route: 048
     Dates: start: 20151121
  3. ADEMPAS [Concomitant]
     Active Substance: RIOCIGUAT
     Indication: SYSTEMIC SCLERODERMA
  4. WYPAX [Concomitant]
     Active Substance: LORAZEPAM
     Indication: DEPRESSION
     Dosage: UNK
     Route: 048
  5. SODIUM RABEPRAZOLE [Concomitant]
     Active Substance: RABEPRAZOLE SODIUM
     Indication: PROPHYLAXIS
     Dosage: UNK
     Route: 048
  6. ADEMPAS [Concomitant]
     Active Substance: RIOCIGUAT
     Indication: SYSTEMIC LUPUS ERYTHEMATOSUS
  7. SILDENAFIL CITRATE. [Concomitant]
     Active Substance: SILDENAFIL CITRATE
     Indication: PRODUCT USED FOR UNKNOWN INDICATION
     Route: 048
  8. REMODULIN [Suspect]
     Active Substance: TREPROSTINIL
     Indication: SYSTEMIC SCLERODERMA
     Dosage: 0.100 ?G/KG, CONTINUING
     Route: 058
     Dates: start: 20160118
  9. EPOPROSTENOL SODIUM. [Concomitant]
     Active Substance: EPOPROSTENOL SODIUM
     Indication: CONNECTIVE TISSUE DISORDER
  10. ADCIRCA [Concomitant]
     Active Substance: TADALAFIL
     Indication: CONNECTIVE TISSUE DISORDER
  11. ADCIRCA [Concomitant]
     Active Substance: TADALAFIL
     Indication: SJOGREN^S SYNDROME
  12. TRACLEER [Concomitant]
     Active Substance: BOSENTAN
     Indication: CONNECTIVE TISSUE DISORDER
  13. ADEMPAS [Concomitant]
     Active Substance: RIOCIGUAT
     Indication: CONNECTIVE TISSUE DISORDER
  14. REMODULIN [Suspect]
     Active Substance: TREPROSTINIL
     Indication: CONNECTIVE TISSUE DISORDER
     Dosage: 0.0158 ?G/KG, CONTINUING
     Route: 058
     Dates: start: 20151102
  15. REMODULIN [Suspect]
     Active Substance: TREPROSTINIL
     Indication: SYSTEMIC LUPUS ERYTHEMATOSUS
     Dosage: 0.048 ?G/KG, CONTINUING
     Route: 058
     Dates: start: 20151126
  16. TRACLEER [Concomitant]
     Active Substance: BOSENTAN
     Indication: SYSTEMIC SCLERODERMA
  17. TRACLEER [Concomitant]
     Active Substance: BOSENTAN
     Indication: SJOGREN^S SYNDROME
  18. FERROUS SULFATE. [Concomitant]
     Active Substance: FERROUS SULFATE
     Indication: IRON DEFICIENCY ANAEMIA
     Dosage: UNK
     Route: 048
  19. WARFARIN                           /00014803/ [Concomitant]
     Active Substance: WARFARIN
     Indication: SJOGREN^S SYNDROME
  20. EPOPROSTENOL SODIUM. [Concomitant]
     Active Substance: EPOPROSTENOL SODIUM
     Indication: PULMONARY ARTERIAL HYPERTENSION
     Dosage: UNK
     Route: 042
     Dates: start: 201506
  21. ADCIRCA [Concomitant]
     Active Substance: TADALAFIL
     Indication: PULMONARY ARTERIAL HYPERTENSION
     Dosage: UNK
     Route: 048
     Dates: start: 201011
  22. ADCIRCA [Concomitant]
     Active Substance: TADALAFIL
     Indication: SYSTEMIC SCLERODERMA
  23. TRACLEER [Concomitant]
     Active Substance: BOSENTAN
     Indication: SYSTEMIC LUPUS ERYTHEMATOSUS
  24. CARELOAD [Concomitant]
     Active Substance: BERAPROST SODIUM
     Indication: SYSTEMIC SCLERODERMA
  25. MACITENTAN [Concomitant]
     Active Substance: MACITENTAN
     Indication: PRODUCT USED FOR UNKNOWN INDICATION
     Route: 048
  26. SPIRONOLACTONE. [Concomitant]
     Active Substance: SPIRONOLACTONE
     Indication: RIGHT VENTRICULAR FAILURE
     Dosage: UNK
     Route: 048
  27. GASTROM [Concomitant]
     Active Substance: ECABET SODIUM
     Indication: PROPHYLAXIS
     Dosage: UNK
     Route: 048
  28. WARFARIN                           /00014803/ [Concomitant]
     Active Substance: WARFARIN
     Indication: SYSTEMIC LUPUS ERYTHEMATOSUS
  29. WARFARIN                           /00014803/ [Concomitant]
     Active Substance: WARFARIN
     Indication: SYSTEMIC SCLERODERMA
  30. REMODULIN [Suspect]
     Active Substance: TREPROSTINIL
     Indication: PULMONARY ARTERIAL HYPERTENSION
     Dosage: UNK
     Route: 058
     Dates: start: 20151028
  31. REMODULIN [Suspect]
     Active Substance: TREPROSTINIL
     Indication: SJOGREN^S SYNDROME
     Dosage: 0.120 ?G/KG, CONTINUING
     Route: 058
     Dates: start: 20160125
  32. TRACLEER [Concomitant]
     Active Substance: BOSENTAN
     Indication: PULMONARY ARTERIAL HYPERTENSION
     Dosage: UNK
     Route: 048
     Dates: start: 201004
  33. LUPRAC [Concomitant]
     Active Substance: TORSEMIDE
     Indication: RIGHT VENTRICULAR FAILURE
     Dosage: UNK
     Route: 048
  34. LEXOTAN [Concomitant]
     Active Substance: BROMAZEPAM
     Indication: DEPRESSION
     Dosage: UNK
     Route: 048
  35. PREDONINE [Concomitant]
     Active Substance: PREDNISOLONE
     Indication: SYSTEMIC LUPUS ERYTHEMATOSUS
     Dosage: UNK
     Route: 065
  36. WARFARIN                           /00014803/ [Concomitant]
     Active Substance: WARFARIN
     Indication: CONNECTIVE TISSUE DISORDER
  37. CARELOAD [Concomitant]
     Active Substance: BERAPROST SODIUM
     Indication: SYSTEMIC LUPUS ERYTHEMATOSUS
  38. CARELOAD [Concomitant]
     Active Substance: BERAPROST SODIUM
     Indication: SJOGREN^S SYNDROME
  39. ADEMPAS [Concomitant]
     Active Substance: RIOCIGUAT
     Indication: SJOGREN^S SYNDROME
  40. PAXIL [Concomitant]
     Active Substance: PAROXETINE HYDROCHLORIDE
     Indication: DEPRESSION
     Dosage: UNK
     Route: 048
  41. K-SUPPLY [Concomitant]
     Active Substance: POTASSIUM CHLORIDE
     Indication: HYPOKALAEMIA
     Dosage: UNK
     Route: 048
  42. ALENDRONATE SODIUM HYDRATE [Concomitant]
     Active Substance: ALENDRONATE SODIUM
     Indication: PROPHYLAXIS
     Dosage: UNK
     Route: 065
  43. WARFARIN                           /00014803/ [Concomitant]
     Active Substance: WARFARIN
     Indication: PULMONARY ARTERIAL HYPERTENSION
     Dosage: UNK
     Route: 048
  44. CARELOAD [Concomitant]
     Active Substance: BERAPROST SODIUM
     Indication: CONNECTIVE TISSUE DISORDER
  45. ADEMPAS [Concomitant]
     Active Substance: RIOCIGUAT
     Indication: PULMONARY ARTERIAL HYPERTENSION
     Dosage: UNK
     Route: 048
     Dates: start: 20151124

REACTIONS (6)
  - Collagen disorder [Unknown]
  - Haemorrhage [Unknown]
  - Pneumonia [Unknown]
  - Death [Fatal]
  - Renal failure [Unknown]
  - Platelet count decreased [Unknown]

NARRATIVE: CASE EVENT DATE: 20170517
